FAERS Safety Report 7199087-5 (Version None)
Quarter: 2010Q4

REPORT INFORMATION
  Report Type: 
  Country: None (occurrence: None)
  Receive Date: 20101124
  Receipt Date: 20091111
  Transmission Date: 20110411
  Serious: Yes (Other)
  Sender: FDA-Public Use
  Company Number: ALL1-2009-03514

PATIENT
  Age: 65 Year
  Sex: Male
  Weight: 65.8 kg

DRUGS (1)
  1. CARBATROL [Suspect]
     Indication: EPILEPSY
     Dosage: 300 MG, 2X/DAY:BID,ORAL
     Route: 048
     Dates: start: 20020101

REACTIONS (3)
  - PRURITUS [None]
  - RASH [None]
  - URTICARIA [None]
